FAERS Safety Report 15000624 (Version 2)
Quarter: 2018Q2

REPORT INFORMATION
  Report Type: Spontaneous
  Country: US (occurrence: US)
  Receive Date: 20180612
  Receipt Date: 20180618
  Transmission Date: 20180711
  Serious: Yes (Other)
  Sender: FDA-Public Use
  Company Number: US-PFIZER INC-2018235639

PATIENT
  Age: 61 Year
  Sex: Female

DRUGS (1)
  1. VANCOMYCIN HCL [Suspect]
     Active Substance: VANCOMYCIN HYDROCHLORIDE
     Indication: ANTIBIOTIC PROPHYLAXIS
     Dosage: 1 MG, UNK (INTRACAMERAL INJECTIONS, IN BOTH EYES, 2 WEEKS APART)

REACTIONS (2)
  - Retinal vasculitis [Recovered/Resolved]
  - Product use issue [Unknown]
